FAERS Safety Report 21177155 (Version 1)
Quarter: 2022Q3

REPORT INFORMATION
  Report Type: Spontaneous
  Country: CA (occurrence: CA)
  Receive Date: 20220805
  Receipt Date: 20220805
  Transmission Date: 20221027
  Serious: Yes (Other)
  Sender: FDA-Public Use
  Company Number: CA-PFIZER INC-2020230849

PATIENT
  Age: 82 Year
  Sex: Female
  Weight: 59 kg

DRUGS (3)
  1. IBRANCE [Suspect]
     Active Substance: PALBOCICLIB
     Dosage: 125 MG
     Dates: start: 20190604
  2. IBRANCE [Suspect]
     Active Substance: PALBOCICLIB
     Dosage: 125 MG, CYCLIC (21/28 DAYS)
     Route: 048
     Dates: start: 20190611
  3. FULVESTRANT [Concomitant]
     Active Substance: FULVESTRANT
     Dosage: 250 MG, CYCLIC (250 MG IN EACH BUTTOCKS/ 28 DAYS)

REACTIONS (16)
  - Pulmonary fibrosis [Unknown]
  - Arteriosclerosis coronary artery [Unknown]
  - Atrial enlargement [Unknown]
  - Diverticulum [Unknown]
  - Bronchial wall thickening [Unknown]
  - Pleural thickening [Unknown]
  - Gastric disorder [Unknown]
  - Pulmonary mass [Unknown]
  - Hepatic lesion [Unknown]
  - Cholelithiasis [Unknown]
  - Arteriosclerosis [Unknown]
  - Thyroid disorder [Unknown]
  - Spinal osteoarthritis [Unknown]
  - Thyroid calcification [Unknown]
  - Spinal osteoarthritis [Unknown]
  - Neoplasm progression [Not Recovered/Not Resolved]
